FAERS Safety Report 5466583-8 (Version None)
Quarter: 2007Q3

REPORT INFORMATION
  Report Type: 
  Country: None (occurrence: None)
  Receive Date: 20070925
  Receipt Date: 20070914
  Transmission Date: 20080115
  Serious: Yes (Other)
  Sender: FDA-Public Use
  Company Number: PHHO2007MX15360

PATIENT
  Age: 6 Year
  Sex: Female

DRUGS (1)
  1. TRILEPTAL [Suspect]
     Route: 048
     Dates: start: 20070301

REACTIONS (1)
  - CONVULSION [None]
